FAERS Safety Report 7013031-2 (Version None)
Quarter: 2010Q3

REPORT INFORMATION
  Report Type: 
  Country: None (occurrence: None)
  Receive Date: 20100924
  Receipt Date: 20100917
  Transmission Date: 20110219
  Serious: Yes (Hospitalization)
  Sender: FDA-Public Use
  Company Number: FR-PFIZER INC-2010117752

PATIENT
  Age: 57 Year
  Sex: Male

DRUGS (4)
  1. TAHOR [Suspect]
     Dosage: 10 MG, 1X/DAY
     Route: 048
     Dates: start: 20090828, end: 20100401
  2. FRACTAL [Suspect]
     Dosage: 1 DF, 1X/DAY
     Route: 048
     Dates: end: 20090601
  3. OGAST [Suspect]
     Dosage: 1 DF, 1X/DAY
     Route: 048
     Dates: start: 20090101, end: 20090810
  4. NEXIUM [Suspect]
     Dosage: 1 DF, 1X/DAY
     Route: 048
     Dates: start: 20090828

REACTIONS (5)
  - EOSINOPHILIA [None]
  - EOSINOPHILIC FASCIITIS [None]
  - HYPERTENSION [None]
  - HYPOALBUMINAEMIA [None]
  - PROTEINURIA [None]
